FAERS Safety Report 8443993-8 (Version None)
Quarter: 2012Q2

REPORT INFORMATION
  Report Type: 
  Country: None (occurrence: None)
  Receive Date: 20120618
  Receipt Date: 20120611
  Transmission Date: 20120825
  Serious: Yes (Other)
  Sender: FDA-Public Use
  Company Number: PHHY2012BR051326

PATIENT
  Age: 92 Year
  Sex: Female

DRUGS (2)
  1. TEGRETOL-XR [Suspect]
     Indication: TRIGEMINAL NEURALGIA
     Dosage: 3 DF, TEGRETOL CR 400MG, DAILY
  2. TEGRETOL-XR [Suspect]
     Dosage: 3 DF, TEGRETOL CR 200MG  Q8H

REACTIONS (6)
  - INFANTILE SPITTING UP [None]
  - AGEUSIA [None]
  - BLOOD PRESSURE ABNORMAL [None]
  - TRIGEMINAL NEURALGIA [None]
  - VOMITING [None]
  - DEMENTIA ALZHEIMER'S TYPE [None]
